FAERS Safety Report 21213412 (Version 1)
Quarter: 2022Q3

REPORT INFORMATION
  Report Type: Spontaneous
  Country: None (occurrence: US)
  Receive Date: 20220815
  Receipt Date: 20220815
  Transmission Date: 20221027
  Serious: Yes (Other)
  Sender: FDA-Public Use
  Company Number: US-Edgewell Personal Care, LLC-2131912

PATIENT
  Sex: Female

DRUGS (1)
  1. BANANA BOAT (AVOBENZONE\HOMOSALATE\OCTISALATE\OCTOCRYLENE) [Suspect]
     Active Substance: AVOBENZONE\HOMOSALATE\OCTISALATE\OCTOCRYLENE
     Indication: Prophylaxis against solar radiation
     Route: 061

REACTIONS (7)
  - Anaphylactic shock [Unknown]
  - Chemical burn [Unknown]
  - Hypersensitivity [Unknown]
  - Thermal burn [Unknown]
  - Blister [Unknown]
  - Throat tightness [Unknown]
  - Dyspnoea [Unknown]
